FAERS Safety Report 13355686 (Version 3)
Quarter: 2017Q3

REPORT INFORMATION
  Report Type: Other
  Country: US (occurrence: US)
  Receive Date: 20170321
  Receipt Date: 20170724
  Transmission Date: 20171127
  Serious: Yes (Disabling, Other)
  Sender: FDA-Public Use
  Company Number: US-ACORDA-ACO_135275_2017

PATIENT
  Sex: Female

DRUGS (2)
  1. AMPYRA [Suspect]
     Active Substance: DALFAMPRIDINE
     Indication: PRODUCT USED FOR UNKNOWN INDICATION
     Dosage: 10 MG, Q 12 HRS
     Route: 065
     Dates: start: 20160623
  2. NITROFURANTOIN. [Suspect]
     Active Substance: NITROFURANTOIN
     Indication: CYSTITIS
     Dosage: UNK

REACTIONS (8)
  - Yellow skin [Unknown]
  - Gait inability [Unknown]
  - Cystitis [Unknown]
  - Gait disturbance [Unknown]
  - Lower limb fracture [Unknown]
  - Ocular icterus [Unknown]
  - Chromaturia [Unknown]
  - Urinary tract infection [None]
